FAERS Safety Report 6031916-0 (Version None)
Quarter: 2008Q4

REPORT INFORMATION
  Report Type: 
  Country: None (occurrence: None)
  Receive Date: 20081229
  Receipt Date: 20080506
  Transmission Date: 20090506
  Serious: Yes (Other)
  Sender: FDA-Public Use
  Company Number: WAES 0708USA05475

PATIENT
  Age: 68 Year
  Sex: Male
  Weight: 77.1115 kg

DRUGS (3)
  1. ZETIA [Suspect]
     Dosage: 10 MG, PO
     Route: 048
  2. CRESTOR [Suspect]
     Indication: BLOOD CHOLESTEROL INCREASED
     Dosage: 5 MG, PO
     Route: 048
     Dates: start: 20050701, end: 20050801
  3. CRESTOR [Suspect]
     Indication: BLOOD CHOLESTEROL INCREASED
     Dosage: 10 MG, PO
     Route: 048
     Dates: start: 20050701, end: 20050801

REACTIONS (4)
  - ALANINE AMINOTRANSFERASE INCREASED [None]
  - FATIGUE [None]
  - HEPATITIS [None]
  - MYALGIA [None]
